FAERS Safety Report 5066344-8 (Version None)
Quarter: 2006Q3

REPORT INFORMATION
  Report Type: 
  Country: None (occurrence: None)
  Receive Date: 20060719
  Receipt Date: 20060621
  Transmission Date: 20061208
  Serious: No
  Sender: FDA-Public Use
  Company Number: 06P-163-0329754-00

PATIENT
  Age: 39 Year
  Sex: Male

DRUGS (6)
  1. NORVIR [Suspect]
     Indication: HIV INFECTION
     Dosage: 100 MG, 2 IN 1 D, PER ORAL
     Route: 048
     Dates: start: 20051214, end: 20060313
  2. GW640385X [Suspect]
     Indication: HIV INFECTION
     Dosage: 600 MG, 2 IN 1 D, PER ORAL
     Route: 048
     Dates: start: 20051214, end: 20060313
  3. BACTRIM [Suspect]
     Dosage: 800 MG, 1 IN 1 D, PER ORAL
     Route: 048
     Dates: start: 20040601, end: 20060313
  4. OXANDROLONE [Suspect]
     Dosage: PER ORAL
     Route: 048
     Dates: start: 20030819, end: 20060313
  5. ABACAVIR SULFATE [Concomitant]
  6. TENOFOVIR [Concomitant]

REACTIONS (2)
  - BLOOD BILIRUBIN INCREASED [None]
  - HEPATITIS VIRAL [None]
